FAERS Safety Report 11211463 (Version 1)
Quarter: 2015Q2

REPORT INFORMATION
  Report Type: Spontaneous
  Country: VE (occurrence: VE)
  Receive Date: 20150623
  Receipt Date: 20150623
  Transmission Date: 20150821
  Serious: Yes (Other)
  Sender: FDA-Public Use
  Company Number: VE-SA-2015SA089794

PATIENT
  Age: 5 Year
  Sex: Female
  Weight: 14.1 kg

DRUGS (1)
  1. MYOZYME [Suspect]
     Active Substance: ALGLUCOSIDASE ALFA
     Indication: GLYCOGEN STORAGE DISEASE TYPE II
     Route: 041
     Dates: start: 201411

REACTIONS (7)
  - Pyrexia [Unknown]
  - Arrhythmia [Unknown]
  - Chest pain [Unknown]
  - Infection [Unknown]
  - Pain in extremity [Unknown]
  - Cough [Unknown]
  - Angina pectoris [Unknown]

NARRATIVE: CASE EVENT DATE: 2015
